FAERS Safety Report 5197690-5 (Version None)
Quarter: 2006Q4

REPORT INFORMATION
  Report Type: 
  Country: None (occurrence: None)
  Receive Date: 20061227
  Receipt Date: 20061212
  Transmission Date: 20070319
  Serious: Yes (Hospitalization)
  Sender: FDA-Public Use
  Company Number: 2006142574

PATIENT
  Age: 62 Year
  Sex: Female
  Weight: 69 kg

DRUGS (3)
  1. AROMASIN [Suspect]
     Indication: BREAST CANCER
     Dosage: 1 TABLET (DAILY), ORAL
     Route: 048
     Dates: start: 20030513
  2. OEKOLP (ESTRIOL) [Concomitant]
  3. THYRONAJOD (LEVOTHYROXINE SODIUM, POTASSIUM IODIDE [Concomitant]

REACTIONS (2)
  - HYPERTENSION [None]
  - TACHYCARDIA [None]
